FAERS Safety Report 5396036-7 (Version None)
Quarter: 2007Q3

REPORT INFORMATION
  Report Type: 
  Country: None (occurrence: None)
  Receive Date: 20070724
  Receipt Date: 20070712
  Transmission Date: 20080115
  Serious: Yes (Hospitalization, Other)
  Sender: FDA-Public Use
  Company Number: US-PFIZER INC-2007059048

PATIENT
  Sex: Female
  Weight: 90.9 kg

DRUGS (13)
  1. CHANTIX [Suspect]
     Indication: EX-SMOKER
  2. ZYVOX [Concomitant]
  3. PROTONIX [Concomitant]
  4. SYNTHROID [Concomitant]
  5. LAMICTAL [Concomitant]
  6. FUROSEMIDE [Concomitant]
  7. ANSAID [Concomitant]
  8. PREDNISONE [Concomitant]
  9. VENLAFAXINE HCL [Concomitant]
  10. FLUVASTATIN [Concomitant]
     Indication: BLOOD CHOLESTEROL INCREASED
  11. MORPHINE [Concomitant]
     Indication: PAIN
  12. SOMA [Concomitant]
     Indication: PAIN
  13. INSULIN [Concomitant]

REACTIONS (3)
  - BLOOD GLUCOSE INCREASED [None]
  - NIGHTMARE [None]
  - WOUND INFECTION [None]
